FAERS Safety Report 10232631 (Version 1)
Quarter: 2014Q2

REPORT INFORMATION
  Report Type: Spontaneous
  Country: DK (occurrence: DK)
  Receive Date: 20140612
  Receipt Date: 20140612
  Transmission Date: 20141212
  Serious: Yes (Disabling)
  Sender: FDA-Public Use
  Company Number: DK-PFIZER INC-2014156189

PATIENT
  Age: 60 Year
  Sex: Female

DRUGS (7)
  1. EPIRUBICIN HCL [Suspect]
     Indication: BREAST CANCER
     Dosage: 180 MG (CYCLE 1)
     Dates: start: 20101215
  2. EPIRUBICIN HCL [Suspect]
     Dosage: 1700 MG (CYCLE 2)
     Dates: start: 20110117
  3. EPIRUBICIN HCL [Suspect]
     Dosage: 100 MG (CYCLE 3)
     Dates: start: 20110228
  4. SENDOXAN [Suspect]
     Indication: BREAST CANCER
     Dosage: 1200 MG, CYCLE 1
     Dates: start: 20101215
  5. SENDOXAN [Suspect]
     Dosage: 1100 MG, CYCLE 2
     Dates: start: 20110117
  6. SENDOXAN [Suspect]
     Dosage: 780 MG, CYCLE 3
     Dates: start: 20110228
  7. TAXOTERE [Suspect]
     Indication: BREAST CANCER
     Dosage: 120 MG, 5 TIMES
     Dates: start: 2011, end: 201107

REACTIONS (2)
  - Ageusia [Not Recovered/Not Resolved]
  - Anosmia [Not Recovered/Not Resolved]
